FAERS Safety Report 5319699-0 (Version None)
Quarter: 2007Q2

REPORT INFORMATION
  Report Type: 
  Country: None (occurrence: None)
  Receive Date: 20070503
  Receipt Date: 20070430
  Transmission Date: 20071010
  Serious: Yes (Life-Threatening, Hospitalization)
  Sender: FDA-Public Use
  Company Number: 2007-02117

PATIENT
  Age: 25 Year
  Sex: Female

DRUGS (2)
  1. TRELSTAR [Suspect]
     Indication: ENDOMETRIOSIS
     Dosage: 11.25 MG, 1 IN 3 MONTHS, INTRAMUSCULAR
     Route: 030
     Dates: start: 20070201, end: 20070201
  2. ORAL CONTRACEPTIVES NOS (ORAL CONTRACEPTIVE NOS) [Suspect]
     Indication: PROPHYLAXIS
     Dosage: ORAL
     Route: 048
     Dates: start: 20070201

REACTIONS (1)
  - PULMONARY EMBOLISM [None]
